FAERS Safety Report 26170778 (Version 1)
Quarter: 2025Q4

REPORT INFORMATION
  Report Type: Spontaneous
  Country: US (occurrence: US)
  Receive Date: 20251217
  Receipt Date: 20251217
  Transmission Date: 20260119
  Serious: No
  Sender: ABBVIE
  Company Number: US-ABBVIE-6586924

PATIENT

DRUGS (1)
  1. VIIBRYD [Suspect]
     Active Substance: VILAZODONE HYDROCHLORIDE
     Indication: Generalised anxiety disorder
     Route: 065
     Dates: end: 20251207

REACTIONS (3)
  - Drug ineffective [Unknown]
  - Abnormal dreams [Unknown]
  - Insomnia [Unknown]

NARRATIVE: CASE EVENT DATE: 20251201
